FAERS Safety Report 6084120-4 (Version None)
Quarter: 2009Q1

REPORT INFORMATION
  Report Type: 
  Country: None (occurrence: None)
  Receive Date: 20090219
  Receipt Date: 20071210
  Transmission Date: 20090719
  Serious: Yes (Disabling)
  Sender: FDA-Public Use
  Company Number: GB-MERCK-0711GBR00095

PATIENT
  Age: 87 Year
  Sex: Male

DRUGS (15)
  1. ZOCOR [Suspect]
     Indication: HYPERCHOLESTEROLAEMIA
     Route: 048
     Dates: start: 20070719, end: 20070804
  2. AMIODARONE [Suspect]
     Indication: ARRHYTHMIA
     Route: 048
  3. ALENDRONIC ACID [Concomitant]
     Indication: OSTEOPOROSIS
     Route: 048
  4. AMLODIPINE BESYLATE [Concomitant]
     Indication: HYPERTENSION
     Route: 048
  5. ASPIRIN [Concomitant]
     Route: 065
  6. CALCICHEW [Concomitant]
     Route: 065
  7. CITALOPRAM [Concomitant]
     Route: 048
  8. CLOPIDOGREL BISULFATE [Concomitant]
     Route: 065
  9. FERROUS SULFATE [Concomitant]
     Route: 065
  10. FUROSEMIDE [Concomitant]
     Route: 065
  11. GAVISCON [Concomitant]
     Route: 065
  12. COZAAR [Concomitant]
     Route: 065
  13. NULYTELY [Concomitant]
     Route: 065
  14. SENNA [Concomitant]
     Route: 065
  15. TAMSULOSIN HYDROCHLORIDE [Concomitant]
     Route: 065

REACTIONS (2)
  - DRUG INTERACTION [None]
  - MUSCULAR WEAKNESS [None]
